FAERS Safety Report 7723653-9 (Version None)
Quarter: 2011Q3

REPORT INFORMATION
  Report Type: 
  Country: None (occurrence: None)
  Receive Date: 20110826
  Receipt Date: 20110816
  Transmission Date: 20111222
  Serious: Yes (Death, Hospitalization, Other)
  Sender: FDA-Public Use
  Company Number: ACO_26146_2011

PATIENT
  Age: 61 Year
  Sex: Female
  Weight: 108.8 kg

DRUGS (7)
  1. AMPYRA [Suspect]
     Indication: MULTIPLE SCLEROSIS
     Dosage: 10 MG, BID, ORAL
     Route: 048
     Dates: start: 20100901, end: 20110802
  2. COPAXONE [Suspect]
     Indication: PRODUCT USED FOR UNKNOWN INDICATION
  3. TIZANIDINE HCL [Concomitant]
  4. VITAMIN D NOS (VITAMIN D NOS) [Concomitant]
  5. BETASERON [Suspect]
     Indication: PRODUCT USED FOR UNKNOWN INDICATION
  6. BACLOFEN [Concomitant]
  7. CALCIUM CARBONATE [Concomitant]

REACTIONS (4)
  - HALLUCINATIONS, MIXED [None]
  - UNRESPONSIVE TO STIMULI [None]
  - LUNG DISORDER [None]
  - CARDIO-RESPIRATORY ARREST [None]
